FAERS Safety Report 5155571-7 (Version None)
Quarter: 2006Q4

REPORT INFORMATION
  Report Type: 
  Country: None (occurrence: None)
  Receive Date: 20061113
  Receipt Date: 20061024
  Transmission Date: 20070319
  Serious: Yes (Death)
  Sender: FDA-Public Use
  Company Number: PAR_0988_2006

PATIENT
  Age: 38 Year

DRUGS (3)
  1. HALOPERIDOL [Suspect]
     Dosage: DF UNK UNK
  2. COCAINE [Suspect]
     Dosage: DF UNK UNK
  3. LORAZEPAM [Suspect]
     Dosage: DF UNK UNK

REACTIONS (1)
  - DRUG TOXICITY [None]
